FAERS Safety Report 5376645-1 (Version None)
Quarter: 2007Q2

REPORT INFORMATION
  Report Type: 
  Country: None (occurrence: None)
  Receive Date: 20070629
  Receipt Date: 20070615
  Transmission Date: 20071010
  Serious: Yes (Hospitalization, Other)
  Sender: FDA-Public Use
  Company Number: 230019M07DEU

PATIENT
  Age: 56 Year
  Sex: Female
  Weight: 65 kg

DRUGS (4)
  1. REBIF [Suspect]
     Indication: MULTIPLE SCLEROSIS
     Dosage: 44 MCG, 1 IN 1 DAYS, SUBCUTANEOUS
     Route: 058
     Dates: start: 20060301
  2. BACLOFEN [Concomitant]
  3. RAMIPRIL /00885601/ [Concomitant]
  4. METOPROLOL SUCCINATE [Concomitant]

REACTIONS (1)
  - ENDOMETRIAL CANCER [None]
